FAERS Safety Report 9404878 (Version 3)
Quarter: 2013Q3

REPORT INFORMATION
  Report Type: Spontaneous
  Country: IT (occurrence: IT)
  Receive Date: 20130717
  Receipt Date: 20130909
  Transmission Date: 20140515
  Serious: Yes (Hospitalization)
  Sender: FDA-Public Use
  Company Number: IT-TEVA-417827ISR

PATIENT
  Age: 60 Year
  Sex: 0

DRUGS (11)
  1. FLUOROURACILE TEVA [Suspect]
     Indication: COLON CANCER
     Dosage: 2280 MILLIGRAM DAILY;
     Route: 042
     Dates: start: 20130424
  2. FLUOROURACILE TEVA [Suspect]
     Dosage: 750 MILLIGRAM DAILY;
     Route: 040
     Dates: start: 20130424
  3. FLUOROURACILE TEVA [Suspect]
     Dosage: 1650 MILLIGRAM DAILY;
     Route: 042
     Dates: start: 20130527, end: 20130626
  4. FLUOROURACILE TEVA [Suspect]
     Dosage: 550 MILLIGRAM DAILY;
     Route: 040
     Dates: start: 20130527, end: 20130626
  5. FLUOROURACILE TEVA [Suspect]
     Dosage: 1200 MG/M2 DAILY;
     Route: 042
  6. CAMPTO [Suspect]
     Indication: COLON CANCER
     Dosage: 340 MILLIGRAM DAILY;
     Route: 042
     Dates: start: 20130424
  7. CAMPTO [Suspect]
     Dosage: 250 MILLIGRAM DAILY;
     Route: 042
     Dates: start: 20130527
  8. CAMPTO [Suspect]
     Dosage: 190 MILLIGRAM DAILY;
     Route: 042
     Dates: start: 20130610, end: 20130626
  9. CAMPTO [Suspect]
     Dosage: 165 MILLIGRAM DAILY;
     Route: 042
  10. ERBITUX [Suspect]
     Indication: COLON CANCER
     Dosage: 460 MILLIGRAM DAILY;
     Route: 042
     Dates: start: 20130509, end: 20130701
  11. LEDERFOLIN [Suspect]
     Indication: COLON CANCER
     Dosage: 200 MILLIGRAM DAILY;
     Route: 042
     Dates: start: 20130424, end: 20130627

REACTIONS (3)
  - Diarrhoea [Recovered/Resolved]
  - Neutropenia [Recovering/Resolving]
  - Dizziness [Recovering/Resolving]
